FAERS Safety Report 12429442 (Version 2)
Quarter: 2017Q3

REPORT INFORMATION
  Report Type: Spontaneous
  Country: JP (occurrence: JP)
  Receive Date: 20160602
  Receipt Date: 20170720
  Transmission Date: 20171127
  Serious: Yes (Death, Other)
  Sender: FDA-Public Use
  Company Number: JP-SA-2016SA103222

PATIENT
  Sex: Male

DRUGS (2)
  1. ITANGO PEN [Concomitant]
     Active Substance: INSULIN NOS
     Route: 065
  2. LANTUS [Suspect]
     Active Substance: INSULIN GLARGINE
     Route: 058

REACTIONS (3)
  - Death [Fatal]
  - Hyperglycaemia [Not Recovered/Not Resolved]
  - Interstitial lung disease [Unknown]

NARRATIVE: CASE EVENT DATE: 201509
